FAERS Safety Report 13131710 (Version 1)
Quarter: 2017Q1

REPORT INFORMATION
  Report Type: Spontaneous
  Country: JP (occurrence: JP)
  Receive Date: 20170119
  Receipt Date: 20170119
  Transmission Date: 20170428
  Serious: Yes (Hospitalization)
  Sender: FDA-Public Use
  Company Number: JP-GE HEALTHCARE MEDICAL DIAGNOSTICS-OMPQ-PR-1701S-0083

PATIENT
  Age: 69 Year
  Sex: Female
  Weight: 37 kg

DRUGS (7)
  1. OMNIPAQUE [Suspect]
     Active Substance: IOHEXOL
     Indication: SHOCK
  2. CORTRIL [Concomitant]
     Active Substance: HYDROCORTISONE
  3. OMNIPAQUE [Suspect]
     Active Substance: IOHEXOL
     Indication: DIAGNOSTIC PROCEDURE
  4. THYRADIN S [Concomitant]
     Active Substance: LEVOTHYROXINE SODIUM
  5. AMLODIPINE [Concomitant]
     Active Substance: AMLODIPINE BESYLATE
  6. OMNIPAQUE [Suspect]
     Active Substance: IOHEXOL
     Indication: COLON CANCER
     Dosage: DOSE NOT REPORTED
     Route: 065
     Dates: start: 20161123, end: 20161123
  7. OMNIPAQUE [Suspect]
     Active Substance: IOHEXOL
     Indication: HEPATIC NEOPLASM
     Route: 042
     Dates: start: 20161122, end: 20161122

REACTIONS (1)
  - Pancreatitis acute [Recovered/Resolved]

NARRATIVE: CASE EVENT DATE: 20161123
